FAERS Safety Report 9531940 (Version 2)
Quarter: 2013Q4

REPORT INFORMATION
  Report Type: Spontaneous
  Country: US (occurrence: US)
  Receive Date: 20130918
  Receipt Date: 20131024
  Transmission Date: 20140711
  Serious: No
  Sender: FDA-Public Use
  Company Number: US-PFIZER INC-2013264478

PATIENT
  Age: 65 Year
  Sex: Male
  Weight: 90.7 kg

DRUGS (8)
  1. INLYTA [Suspect]
     Indication: RENAL CELL CARCINOMA
     Dosage: 5 MG, BID
     Route: 048
     Dates: start: 201308
  2. PAMIDRONATE [Concomitant]
     Dosage: UNK, MONTHLY
     Route: 042
  3. LOVENOX [Concomitant]
     Indication: DEEP VEIN THROMBOSIS
     Dosage: 100 MG, 2X/DAY
     Route: 058
  4. LOVENOX [Concomitant]
     Indication: PULMONARY EMBOLISM
     Dosage: 120 MG, UNK
     Dates: start: 20131003
  5. LOVENOX [Concomitant]
     Indication: THROMBOSIS
  6. ZOLOFT [Concomitant]
     Indication: DEPRESSION
     Dosage: 50 MG, DAILY
     Dates: start: 20130926
  7. AMLODIPINE [Concomitant]
     Dosage: 5 MG, 1X/DAY
  8. SALSALATE [Concomitant]
     Indication: PAIN
     Dosage: 500 MG 1-2 TABS, BID
     Dates: start: 20130806

REACTIONS (5)
  - Disease progression [Recovering/Resolving]
  - Renal cell carcinoma [Recovering/Resolving]
  - Aphonia [Recovering/Resolving]
  - Dysphonia [Recovering/Resolving]
  - Platelet count decreased [Recovering/Resolving]
